FAERS Safety Report 8073270-9 (Version None)
Quarter: 2011Q4

REPORT INFORMATION
  Report Type: 
  Country: None (occurrence: None)
  Receive Date: 20111221
  Receipt Date: 20110325
  Transmission Date: 20120403
  Serious: Yes (Other)
  Sender: FDA-Public Use
  Company Number: PHHY2011US25316

PATIENT
  Age: 71 Year
  Sex: Male

DRUGS (2)
  1. EXJADE [Suspect]
     Indication: LYMPHATIC SYSTEM NEOPLASM
     Dosage: 625 MG, QD, ORAL
     Route: 048
     Dates: start: 20100303
  2. EXJADE [Suspect]
     Indication: HAEMATOPOIETIC NEOPLASM
     Dosage: 625 MG, QD, ORAL
     Route: 048
     Dates: start: 20100303

REACTIONS (1)
  - RENAL FAILURE [None]
